FAERS Safety Report 10483526 (Version 1)
Quarter: 2014Q3

REPORT INFORMATION
  Report Type: Spontaneous
  Country: US (occurrence: None)
  Receive Date: 20140929
  Receipt Date: 20140929
  Transmission Date: 20150326
  Serious: Yes (Life-Threatening, Hospitalization, Disabling)
  Sender: FDA-Public Use
  Company Number: None

PATIENT
  Age: 36 Year
  Sex: Male
  Weight: 99.79 kg

DRUGS (1)
  1. KLONOPIN [Suspect]
     Active Substance: CLONAZEPAM
     Indication: ANXIETY
     Dosage: HALF A TABLET TO 1 TABLET?TWICE DAILY?TAKEN BY MOUTH
     Route: 048

REACTIONS (5)
  - Agitation [None]
  - Anxiety [None]
  - Restlessness [None]
  - Anger [None]
  - Aggression [None]

NARRATIVE: CASE EVENT DATE: 20120930
